FAERS Safety Report 13129177 (Version 1)
Quarter: 2017Q1

REPORT INFORMATION
  Report Type: Spontaneous
  Country: US (occurrence: US)
  Receive Date: 20170118
  Receipt Date: 20170118
  Transmission Date: 20170428
  Serious: Yes (Other)
  Sender: FDA-Public Use
  Company Number: None

PATIENT
  Age: 19 Year
  Sex: Male
  Weight: 106.24 kg

DRUGS (2)
  1. QUETIAPINE XR 400MG [Suspect]
     Active Substance: QUETIAPINE
     Indication: SCHIZOAFFECTIVE DISORDER
     Route: 048
     Dates: start: 20161114
  2. QUETIAPINE XR 400MG [Suspect]
     Active Substance: QUETIAPINE
     Indication: ATRIAL SEPTAL DEFECT
     Route: 048
     Dates: start: 20161114

REACTIONS (6)
  - Insomnia [None]
  - Hallucination [None]
  - Condition aggravated [None]
  - Restlessness [None]
  - Irritability [None]
  - Product substitution issue [None]

NARRATIVE: CASE EVENT DATE: 20161212
